FAERS Safety Report 17410025 (Version 2)
Quarter: 2020Q1

REPORT INFORMATION
  Report Type: Spontaneous
  Country: CH (occurrence: CH)
  Receive Date: 20200212
  Receipt Date: 20200310
  Transmission Date: 20200409
  Serious: Yes (Disabling)
  Sender: FDA-Public Use
  Company Number: CH-PFIZER INC-2020060518

PATIENT
  Age: 31 Year
  Sex: Female
  Weight: 60 kg

DRUGS (3)
  1. TEMESTA EXPIDET [Suspect]
     Active Substance: LORAZEPAM
     Dosage: 1 MG, DAILY
     Route: 048
     Dates: start: 201701, end: 201712
  2. BENOCTEN [Suspect]
     Active Substance: DIPHENHYDRAMINE HYDROCHLORIDE
     Indication: INSOMNIA
     Dosage: 50 MG, DAILY
     Route: 048
     Dates: start: 201706, end: 201708
  3. ZOLPIDEM [Suspect]
     Active Substance: ZOLPIDEM TARTRATE
     Indication: INSOMNIA
     Dosage: 20 MG, DAILY
     Route: 048
     Dates: start: 201703, end: 201712

REACTIONS (4)
  - Myopic chorioretinal degeneration [Unknown]
  - Visual impairment [Not Recovered/Not Resolved]
  - Vitreous opacities [Not Recovered/Not Resolved]
  - Obsessive-compulsive disorder [Unknown]

NARRATIVE: CASE EVENT DATE: 201708
